FAERS Safety Report 9620289 (Version 2)
Quarter: 2013Q4

REPORT INFORMATION
  Report Type: Spontaneous
  Country: US (occurrence: US)
  Receive Date: 20131014
  Receipt Date: 20131014
  Transmission Date: 20140711
  Serious: No
  Sender: FDA-Public Use
  Company Number: US-ALLERGAN-1303276US

PATIENT
  Age: 81 Year
  Sex: Female

DRUGS (4)
  1. LUMIGAN [Suspect]
     Indication: GLAUCOMA
     Dosage: 2 GTT, QHS
     Route: 047
     Dates: start: 2011
  2. ALPHAGAN P [Suspect]
     Indication: GLAUCOMA
     Dosage: 2 GTT, BID
     Route: 047
  3. DOXYCYCLINE [Concomitant]
     Indication: LYME DISEASE
     Dosage: 100 MG, BID
     Route: 048
  4. VALACICLOVIR [Concomitant]
     Indication: HEPATOMEGALY
     Dosage: 500 MG, BID
     Route: 048
     Dates: start: 201302

REACTIONS (9)
  - Dyspnoea [Unknown]
  - Chest pain [Unknown]
  - Tinnitus [Not Recovered/Not Resolved]
  - Musculoskeletal stiffness [Not Recovered/Not Resolved]
  - Inappropriate schedule of drug administration [Unknown]
  - Nausea [Unknown]
  - Vision blurred [Unknown]
  - Headache [Not Recovered/Not Resolved]
  - Eye irritation [Unknown]
